FAERS Safety Report 7458454-2 (Version None)
Quarter: 2011Q2

REPORT INFORMATION
  Report Type: 
  Country: None (occurrence: None)
  Receive Date: 20110503
  Receipt Date: 20110503
  Transmission Date: 20111010
  Serious: Yes (Other)
  Sender: FDA-Public Use
  Company Number: None

PATIENT
  Age: 69 Year
  Sex: Female
  Weight: 104.3273 kg

DRUGS (1)
  1. VICTOZA [Suspect]
     Indication: DIABETES MELLITUS
     Dosage: .06 MG DAILY INTRACAVERNOUS
     Route: 017
     Dates: start: 20110406, end: 20110408

REACTIONS (2)
  - URTICARIA [None]
  - SKIN EXFOLIATION [None]
